FAERS Safety Report 9980681 (Version 1)
Quarter: 2014Q1

REPORT INFORMATION
  Report Type: Spontaneous
  Country: NO (occurrence: NO)
  Receive Date: 20140307
  Receipt Date: 20140307
  Transmission Date: 20141002
  Serious: Yes (Hospitalization)
  Sender: FDA-Public Use
  Company Number: NO-AMGEN-NORSP2014015757

PATIENT
  Age: 69 Year
  Sex: Female

DRUGS (11)
  1. NEULASTA [Suspect]
     Indication: CHEMOTHERAPY TOXICITY ATTENUATION
     Dosage: 6 MG, UNK
     Route: 058
     Dates: start: 20131123, end: 20131123
  2. RITUXIMAB [Concomitant]
     Indication: DIFFUSE LARGE B-CELL LYMPHOMA RECURRENT
     Dosage: 600 MG, QD (ADMINISTERED ON DAY 1 OF R-IME REGIMEN. 4 COURSES GIVEN IN TOTAL.)
     Route: 051
     Dates: start: 20131118
  3. MESNA [Concomitant]
     Indication: CHEMOTHERAPY TOXICITY ATTENUATION
     Dosage: 800 MG, BID (TO BE TAKEN FOR 5 DAYS DURING CHEMOTHERAPY)
     Route: 048
     Dates: start: 20131118, end: 20131122
  4. IFOSFAMIDE [Concomitant]
     Indication: DIFFUSE LARGE B-CELL LYMPHOMA RECURRENT
     Dosage: 1200 MG, QD (ADMINISTERED ON DAY 1-5 OF R-IME REGIMEN. 4 COURSES GIVEN IN TOTAL.)
     Route: 051
     Dates: start: 20131118
  5. EZETROL [Concomitant]
     Indication: HYPERCHOLESTEROLAEMIA
     Dosage: 10 MG, QD
     Route: 048
  6. AFIPRAN [Concomitant]
     Indication: PROPHYLAXIS OF NAUSEA AND VOMITING
     Dosage: 10 MG, AS NECESSARY
     Route: 048
  7. FOSAMAX [Concomitant]
     Dosage: 70 MG, QWK
     Route: 048
  8. METHOTREXATE [Concomitant]
     Indication: DIFFUSE LARGE B-CELL LYMPHOMA RECURRENT
     Dosage: 36 MG, QD (ADMINISTERED ON DAY 3 OF R-IME REGIMEN. 4 COURSES GIVEN IN TOTAL.)
     Route: 051
     Dates: start: 20131118
  9. ETOPOSIDE [Concomitant]
     Indication: DIFFUSE LARGE B-CELL LYMPHOMA RECURRENT
     Dosage: 120 MG, QD (ADMINISTERED ON DAY 1-3 OF R-IME REGIMEN. 4 COURSES GIVEN IN TOTAL.)
     Route: 051
     Dates: start: 20131118
  10. PARALGIN FORTE                     /00116401/ [Concomitant]
     Indication: BACK PAIN
     Dosage: 1 DF, AS NECESSARY
     Route: 048
  11. ONDANSETRON [Concomitant]
     Indication: PROPHYLAXIS OF NAUSEA AND VOMITING
     Dosage: 8 MG TWICE DAILY FOR 5 DAYS DURING CHEMOTHERAPY, LATER 0-8 MG AS NECESSARY
     Route: 048
     Dates: start: 20131118

REACTIONS (1)
  - Cutaneous vasculitis [Recovered/Resolved]
